FAERS Safety Report 8354420-3 (Version None)
Quarter: 2012Q2

REPORT INFORMATION
  Report Type: 
  Country: None (occurrence: None)
  Receive Date: 20120511
  Receipt Date: 20120406
  Transmission Date: 20120825
  Serious: Yes (Other)
  Sender: FDA-Public Use
  Company Number: BE-ROCHE-1061916

PATIENT
  Age: 30 Year
  Sex: Female

DRUGS (4)
  1. HERCEPTIN [Suspect]
     Indication: BREAST CANCER
     Dates: start: 20090701, end: 20110201
  2. CYCLOPHOSPHAMIDE [Concomitant]
     Dates: end: 20110201
  3. FLUOROURACIL [Concomitant]
     Dates: end: 20110201
  4. TAXOTERE [Concomitant]

REACTIONS (1)
  - BREAST CANCER RECURRENT [None]
